FAERS Safety Report 6382636-4 (Version None)
Quarter: 2009Q3

REPORT INFORMATION
  Report Type: 
  Country: None (occurrence: None)
  Receive Date: 20090928
  Receipt Date: 20090928
  Transmission Date: 20100115
  Serious: No
  Sender: FDA-Public Use
  Company Number: None

PATIENT
  Sex: Female
  Weight: 53.5244 kg

DRUGS (4)
  1. METHYLTESTOSTERONE AND ESTROGEN EST [Suspect]
     Indication: HORMONE REPLACEMENT THERAPY
     Dosage: ONE TABLET DAILY PO
     Route: 048
     Dates: start: 20090820, end: 20090920
  2. METHYLTESTOSTERONE AND ESTROGEN EST [Suspect]
     Indication: MENOPAUSE
     Dosage: ONE TABLET DAILY PO
     Route: 048
     Dates: start: 20090820, end: 20090920
  3. COVARYX [Suspect]
  4. ESTRATEST [Suspect]

REACTIONS (2)
  - DRUG INEFFECTIVE [None]
  - PRODUCT SUBSTITUTION ISSUE [None]
